FAERS Safety Report 11003300 (Version 1)
Quarter: 2015Q2

REPORT INFORMATION
  Report Type: Report from Study
  Country: US (occurrence: US)
  Receive Date: 20150409
  Receipt Date: 20150409
  Transmission Date: 20150821
  Serious: Yes (Death)
  Sender: FDA-Public Use
  Company Number: US-ROCHE-1561650

PATIENT
  Age: 52 Year

DRUGS (3)
  1. CYCLOPHOSPHAMIDE. [Suspect]
     Active Substance: CYCLOPHOSPHAMIDE
     Indication: B-CELL LYMPHOMA
     Dosage: ON DAY ONE AND THEN EVERY 21 D FOR 6 CYCLES
     Route: 065
  2. PENTOSTATIN. [Suspect]
     Active Substance: PENTOSTATIN
     Indication: B-CELL LYMPHOMA
     Dosage: ON DAY ONE AND THEN EVERY 21 D FOR 6 CYCLES
     Route: 065
  3. RITUXIMAB [Suspect]
     Active Substance: RITUXIMAB
     Indication: B-CELL LYMPHOMA
     Dosage: ON DAY ONE AND THEN EVERY 21 D FOR 6 CYCLES.
     Route: 042

REACTIONS (2)
  - Renal impairment [Fatal]
  - Gliosis [Fatal]
